FAERS Safety Report 6608653-4 (Version None)
Quarter: 2010Q1

REPORT INFORMATION
  Report Type: 
  Country: None (occurrence: None)
  Receive Date: 20100222
  Receipt Date: 20100212
  Transmission Date: 20100710
  Serious: Yes (Hospitalization)
  Sender: FDA-Public Use
  Company Number: DSA_42108_2009

PATIENT
  Sex: Male

DRUGS (9)
  1. XENAZINE [Suspect]
     Indication: HUNTINGTON'S CHOREA
     Dosage: (12.5 MG BID ORAL), (12.5 MG QD ORAL)
     Route: 048
     Dates: end: 20100101
  2. XENAZINE [Suspect]
     Indication: HUNTINGTON'S CHOREA
     Dosage: (12.5 MG BID ORAL), (12.5 MG QD ORAL)
     Route: 048
     Dates: start: 20091007
  3. ATIVAN [Concomitant]
  4. GLIPIZIDE [Concomitant]
  5. LEXAPRO [Concomitant]
  6. DOCUSATE CALCIUM [Concomitant]
  7. RISPERDAL [Concomitant]
  8. FAMOTIDINE [Concomitant]
  9. ELAVIL [Concomitant]

REACTIONS (9)
  - AGGRESSION [None]
  - ANXIETY [None]
  - DIZZINESS [None]
  - FALL [None]
  - INSOMNIA [None]
  - POLLAKIURIA [None]
  - UNEVALUABLE EVENT [None]
  - VOLUME BLOOD DECREASED [None]
  - WEIGHT DECREASED [None]
